FAERS Safety Report 12858801 (Version 1)
Quarter: 2016Q4

REPORT INFORMATION
  Report Type: Spontaneous
  Country: US (occurrence: US)
  Receive Date: 20161018
  Receipt Date: 20161018
  Transmission Date: 20170207
  Serious: No
  Sender: FDA-Public Use
  Company Number: US-NOVOPROD-511014

PATIENT
  Age: 90 Year
  Sex: Male

DRUGS (2)
  1. TRESIBA [Suspect]
     Active Substance: INSULIN DEGLUDEC
     Indication: TYPE 2 DIABETES MELLITUS
     Dosage: 6 U, QD
     Route: 058
     Dates: start: 201607
  2. TRESIBA [Suspect]
     Active Substance: INSULIN DEGLUDEC
     Dosage: 5 U, QD
     Route: 058
     Dates: start: 2016

REACTIONS (1)
  - Blood glucose decreased [Recovered/Resolved]

NARRATIVE: CASE EVENT DATE: 20160908
